FAERS Safety Report 6392209-5 (Version None)
Quarter: 2009Q4

REPORT INFORMATION
  Report Type: 
  Country: None (occurrence: None)
  Receive Date: 20091005
  Receipt Date: 20090924
  Transmission Date: 20100525
  Serious: Yes (Hospitalization, Disabling)
  Sender: FDA-Public Use
  Company Number: GXKR2009DK10727

PATIENT
  Age: 76 Year
  Sex: Female
  Weight: 80 kg

DRUGS (4)
  1. ATENOLOL [Suspect]
     Indication: HYPERTENSION
     Dosage: 100 MG/DAY, ORAL
     Route: 048
     Dates: end: 20090823
  2. ATACAND [Concomitant]
  3. CENTYL MED KALIUMKLORID (BENDROFLUMETHIAZIDE, POTASSIUM CHLORIDE) [Concomitant]
  4. LEVOTHYROXINE SODIUM [Concomitant]

REACTIONS (6)
  - CONCUSSION [None]
  - FALL [None]
  - HAEMORRHAGE [None]
  - SKULL FRACTURE [None]
  - SUBARACHNOID HAEMORRHAGE [None]
  - SYNCOPE [None]
